FAERS Safety Report 24678982 (Version 1)
Quarter: 2024Q4

REPORT INFORMATION
  Report Type: Spontaneous
  Country: US (occurrence: US)
  Receive Date: 20241129
  Receipt Date: 20241129
  Transmission Date: 20250114
  Serious: Yes (Other)
  Sender: SANOFI AVENTIS
  Company Number: US-SA-2024SA347162

PATIENT
  Age: 14 Year
  Sex: Female
  Weight: 57.324 kg

DRUGS (1)
  1. DUPIXENT [Suspect]
     Active Substance: DUPILUMAB
     Indication: Dermatitis atopic
     Dosage: 400 MG, 1X
     Route: 058
     Dates: start: 20241104, end: 20241104

REACTIONS (7)
  - Pneumonia [Unknown]
  - Nasopharyngitis [Unknown]
  - Decreased appetite [Unknown]
  - Lethargy [Unknown]
  - Pyrexia [Unknown]
  - Visual impairment [Unknown]
  - Dizziness [Unknown]

NARRATIVE: CASE EVENT DATE: 20240101
